FAERS Safety Report 7659006-1 (Version None)
Quarter: 2011Q3

REPORT INFORMATION
  Report Type: 
  Country: None (occurrence: None)
  Receive Date: 20110805
  Receipt Date: 20110722
  Transmission Date: 20111222
  Serious: Yes (Other)
  Sender: FDA-Public Use
  Company Number: US-ELI_LILLY_AND_COMPANY-US201107007949

PATIENT
  Sex: Female

DRUGS (5)
  1. EVISTA [Suspect]
     Indication: OSTEOPOROSIS
     Dosage: 60 MG, QD
  2. EVISTA [Suspect]
     Dosage: 60 MG, QD
  3. VERAPAMIL [Concomitant]
  4. ASPIRIN [Concomitant]
  5. FUROSEMIDE [Concomitant]

REACTIONS (6)
  - BONE CANCER METASTATIC [None]
  - SPINAL CORD COMPRESSION [None]
  - ARTHRITIS [None]
  - MASS [None]
  - BACK PAIN [None]
  - EMOTIONAL DISORDER [None]
